FAERS Safety Report 20081342 (Version 2)
Quarter: 2021Q4

REPORT INFORMATION
  Report Type: Report from Study
  Country: IL (occurrence: IL)
  Receive Date: 20211117
  Receipt Date: 20211119
  Transmission Date: 20220303
  Serious: Yes (Death)
  Sender: FDA-Public Use
  Company Number: IL-ABBVIE-21K-082-4165703-00

PATIENT
  Sex: Male

DRUGS (2)
  1. CARBIDOPA\LEVODOPA [Suspect]
     Active Substance: CARBIDOPA\LEVODOPA
     Indication: Parkinson^s disease
     Dosage: 20 MG/ML 5 MG/ML
     Route: 050
     Dates: start: 20180813
  2. CARBIDOPA\LEVODOPA [Suspect]
     Active Substance: CARBIDOPA\LEVODOPA
     Dosage: MD (ML) 10.4, CD (ML/H) 3.3, EXTRA DOSAGE (ML) 1.5.
     Route: 050

REACTIONS (1)
  - Death [Fatal]
